FAERS Safety Report 15348633 (Version 1)
Quarter: 2018Q3

REPORT INFORMATION
  Report Type: Spontaneous
  Country: US (occurrence: US)
  Receive Date: 20180904
  Receipt Date: 20180904
  Transmission Date: 20181010
  Serious: Yes (Death, Life-Threatening, Hospitalization, Other)
  Sender: FDA-Public Use
  Company Number: US-EPIC PHARMA LLC-2018EPC00400

PATIENT
  Age: 57 Year
  Sex: Female

DRUGS (1)
  1. OXYCODONE HYDROCHLORIDE. [Suspect]
     Active Substance: OXYCODONE HYDROCHLORIDE
     Route: 042

REACTIONS (7)
  - Ventricular fibrillation [Fatal]
  - Atrial flutter [Not Recovered/Not Resolved]
  - Product preparation error [Not Recovered/Not Resolved]
  - Pulmonary granuloma [Fatal]
  - Right ventricular failure [Fatal]
  - Hypotension [Not Recovered/Not Resolved]
  - Pulmonary hypertension [Fatal]
